FAERS Safety Report 10993933 (Version 3)
Quarter: 2015Q2

REPORT INFORMATION
  Report Type: Spontaneous
  Country: TW (occurrence: TW)
  Receive Date: 20150407
  Receipt Date: 20150420
  Transmission Date: 20150821
  Serious: Yes (Hospitalization)
  Sender: FDA-Public Use
  Company Number: TW-JNJFOC-20150401614

PATIENT
  Age: 67 Year
  Sex: Male
  Weight: 72 kg

DRUGS (4)
  1. ARHEUMA [Concomitant]
     Indication: PSORIATIC ARTHROPATHY
     Route: 048
     Dates: start: 20140620, end: 20150302
  2. ARCOXIA [Concomitant]
     Active Substance: ETORICOXIB
     Indication: PSORIATIC ARTHROPATHY
     Dosage: DOSE WAS REPORTED AS 60 UNSPECIFIED UNITS
     Route: 048
     Dates: start: 20130416, end: 20150302
  3. MTX [Suspect]
     Active Substance: METHOTREXATE SODIUM
     Indication: PSORIATIC ARTHROPATHY
     Dosage: DOSE WAS MENTIONED AS 10-15 UNSPECIFIED UNITS.
     Route: 048
     Dates: start: 20130416, end: 20150302
  4. SIMPONI [Suspect]
     Active Substance: GOLIMUMAB
     Indication: PSORIATIC ARTHROPATHY
     Dosage: APPROXIMATE TOTAL NO.OF INJECTIONS RECEIVED: 2
     Route: 058
     Dates: start: 20150302, end: 20150413

REACTIONS (1)
  - Rectosigmoid cancer [Not Recovered/Not Resolved]

NARRATIVE: CASE EVENT DATE: 20150330
